FAERS Safety Report 24381006 (Version 1)
Quarter: 2024Q3

REPORT INFORMATION
  Report Type: Spontaneous
  Country: US (occurrence: US)
  Receive Date: 20240930
  Receipt Date: 20240930
  Transmission Date: 20241016
  Serious: No
  Sender: JOHNSON AND JOHNSON
  Company Number: US-JNJFOC-20240963914

PATIENT
  Age: 11 Year
  Sex: Male

DRUGS (1)
  1. RISPERDAL [Suspect]
     Active Substance: RISPERIDONE
     Indication: Intermittent explosive disorder
     Route: 048
     Dates: end: 20120122

REACTIONS (1)
  - Intermittent explosive disorder [Unknown]

NARRATIVE: CASE EVENT DATE: 20120101
